FAERS Safety Report 22060747 (Version 2)
Quarter: 2023Q1

REPORT INFORMATION
  Report Type: Spontaneous
  Country: US (occurrence: US)
  Receive Date: 20230303
  Receipt Date: 20230309
  Transmission Date: 20230417
  Serious: Yes (Other)
  Sender: FDA-Public Use
  Company Number: US-PFIZER INC-202101660452

PATIENT
  Age: 94 Year
  Sex: Female

DRUGS (2)
  1. IBRANCE [Suspect]
     Active Substance: PALBOCICLIB
     Indication: Breast cancer female
     Dosage: 75 MG, CYCLIC (ONE TABLET EACH DAY FOR FOURTEEN DAYS IN A FOUR WEEK CYCLE)
     Route: 048
  2. IBRANCE [Suspect]
     Active Substance: PALBOCICLIB
     Dosage: 75 MG, CYCLIC (ONCE DAILY FOR 21 DAYS FOR 6 WEEKS)
     Route: 048

REACTIONS (3)
  - Macular degeneration [Unknown]
  - Off label use [Unknown]
  - Product use issue [Unknown]
